FAERS Safety Report 9067785 (Version 1)
Quarter: 2013Q1

REPORT INFORMATION
  Report Type: Spontaneous
  Country: FR (occurrence: FR)
  Receive Date: 20130128
  Receipt Date: 20130128
  Transmission Date: 20140127
  Serious: Yes (Hospitalization)
  Sender: FDA-Public Use
  Company Number: FR-ASTRAZENECA-2013SE04531

PATIENT
  Age: 31161 Day
  Sex: Female

DRUGS (11)
  1. HYTACAND [Suspect]
     Dosage: 16 MG / 12.5 MG, ONE DF PER DAY
     Route: 048
     Dates: start: 2005, end: 20120913
  2. TENSTATEN [Interacting]
     Route: 048
     Dates: start: 2005, end: 20120913
  3. AMLOR [Concomitant]
     Route: 048
     Dates: start: 200705
  4. KERLONE [Concomitant]
     Route: 048
     Dates: start: 2005
  5. XYZALL [Concomitant]
     Route: 048
     Dates: start: 20120401
  6. VASTAREL [Concomitant]
     Route: 048
     Dates: start: 201007
  7. INEXIUM [Concomitant]
     Route: 048
  8. IXPRIM [Concomitant]
     Dosage: 37.5 MG/325 MG 4 DF DAILY
     Dates: start: 201208
  9. VOLTAREN [Concomitant]
     Route: 048
     Dates: start: 201208
  10. MOTILIUM [Concomitant]
  11. DOLIPRANE [Concomitant]

REACTIONS (4)
  - Drug interaction [Unknown]
  - Fall [Recovered/Resolved]
  - Hypokalaemia [Unknown]
  - Hyponatraemia [Recovered/Resolved]
